FAERS Safety Report 4385119-6 (Version None)
Quarter: 2004Q2

REPORT INFORMATION
  Report Type: 
  Country: None (occurrence: None)
  Receive Date: 20040624
  Receipt Date: 20040624
  Transmission Date: 20050107
  Serious: Yes (Hospitalization)
  Sender: FDA-Public Use
  Company Number: None

PATIENT
  Age: 54 Year
  Sex: Male
  Weight: 123 kg

DRUGS (1)
  1. MINOXIDIL [Suspect]
     Indication: HYPERTENSION
     Dosage: 10 MG DAILY ORAL
     Route: 048

REACTIONS (5)
  - ATRIOVENTRICULAR BLOCK [None]
  - BLOODY DISCHARGE [None]
  - BUNDLE BRANCH BLOCK BILATERAL [None]
  - CARDIAC TAMPONADE [None]
  - PERICARDIAL EFFUSION [None]
